FAERS Safety Report 20104919 (Version 2)
Quarter: 2022Q1

REPORT INFORMATION
  Report Type: Spontaneous
  Country: US (occurrence: US)
  Receive Date: 20211124
  Receipt Date: 20220126
  Transmission Date: 20220424
  Serious: No
  Sender: FDA-Public Use
  Company Number: US-BIOGEN-2021BI00987741

PATIENT
  Age: 36 Year
  Sex: Female

DRUGS (3)
  1. VUMERITY [Suspect]
     Active Substance: DIROXIMEL FUMARATE
     Indication: Multiple sclerosis
     Dosage: STARTING DOSE
     Route: 048
     Dates: start: 20210118, end: 20210124
  2. VUMERITY [Suspect]
     Active Substance: DIROXIMEL FUMARATE
     Dosage: MAINTENANCE DOSE
     Route: 048
     Dates: start: 20210125, end: 202102
  3. VUMERITY [Suspect]
     Active Substance: DIROXIMEL FUMARATE
     Dosage: MAINTENANCE DOSE
     Route: 048
     Dates: start: 20210208, end: 20210222

REACTIONS (1)
  - Illness [Recovered/Resolved]

NARRATIVE: CASE EVENT DATE: 20210118
